FAERS Safety Report 21678626 (Version 1)
Quarter: 2022Q4

REPORT INFORMATION
  Report Type: Spontaneous
  Country: US (occurrence: US)
  Receive Date: 20221203
  Receipt Date: 20221203
  Transmission Date: 20230113
  Serious: No
  Sender: FDA-Public Use
  Company Number: US-ELI_LILLY_AND_COMPANY-US202211011380

PATIENT
  Sex: Male

DRUGS (10)
  1. BASAGLAR [Suspect]
     Active Substance: INSULIN GLARGINE
     Indication: Type 2 diabetes mellitus
     Dosage: 10 U, DAILY
     Route: 065
     Dates: start: 202111
  2. BASAGLAR [Suspect]
     Active Substance: INSULIN GLARGINE
     Indication: Type 2 diabetes mellitus
     Dosage: 10 U, DAILY
     Route: 065
     Dates: start: 202111
  3. BASAGLAR [Suspect]
     Active Substance: INSULIN GLARGINE
     Dosage: 11 U, DAILY
     Route: 065
     Dates: start: 202111
  4. BASAGLAR [Suspect]
     Active Substance: INSULIN GLARGINE
     Dosage: 11 U, DAILY
     Route: 065
     Dates: start: 202111
  5. BASAGLAR [Suspect]
     Active Substance: INSULIN GLARGINE
     Dosage: 15 U, DAILY
     Route: 065
     Dates: start: 202111
  6. BASAGLAR [Suspect]
     Active Substance: INSULIN GLARGINE
     Dosage: 15 U, DAILY
     Route: 065
     Dates: start: 202111
  7. BASAGLAR [Suspect]
     Active Substance: INSULIN GLARGINE
     Dosage: 15 U, DAILY
     Route: 065
     Dates: start: 202111
  8. BASAGLAR [Suspect]
     Active Substance: INSULIN GLARGINE
     Dosage: 15 U, DAILY
     Route: 065
     Dates: start: 202111
  9. AMLODIPINE [Suspect]
     Active Substance: AMLODIPINE BESYLATE
     Indication: Anxiety
     Dosage: UNK UNK, UNKNOWN
     Route: 065
  10. AMLODIPINE [Suspect]
     Active Substance: AMLODIPINE BESYLATE
     Indication: Depression
     Dosage: 5 MG, DAILY
     Route: 065

REACTIONS (8)
  - Dizziness [Unknown]
  - Stress [Not Recovered/Not Resolved]
  - Blood glucose increased [Recovering/Resolving]
  - Dyspnoea [Not Recovered/Not Resolved]
  - Depression [Recovering/Resolving]
  - Anxiety [Recovering/Resolving]
  - Glycosylated haemoglobin increased [Unknown]
  - Visual impairment [Not Recovered/Not Resolved]
